FAERS Safety Report 8193108-9 (Version None)
Quarter: 2012Q1

REPORT INFORMATION
  Report Type: 
  Country: None (occurrence: None)
  Receive Date: 20120308
  Receipt Date: 20120308
  Transmission Date: 20120608
  Serious: Yes (Other)
  Sender: FDA-Public Use
  Company Number: None

PATIENT
  Age: 37 Year
  Sex: Female
  Weight: 99.336 kg

DRUGS (2)
  1. LYRICA [Suspect]
     Indication: PAIN
     Dosage: 75MG
     Route: 048
     Dates: start: 20110401, end: 20111227
  2. CYMBALTA [Concomitant]
     Indication: PAIN
     Dosage: 30MG
     Route: 048
     Dates: start: 20110701, end: 20120307

REACTIONS (4)
  - DEPRESSION [None]
  - PAIN [None]
  - SUICIDE ATTEMPT [None]
  - WEIGHT INCREASED [None]
